FAERS Safety Report 26088062 (Version 1)
Quarter: 2025Q4

REPORT INFORMATION
  Report Type: Spontaneous
  Country: CN (occurrence: CN)
  Receive Date: 20251125
  Receipt Date: 20251125
  Transmission Date: 20260118
  Serious: Yes (Other)
  Sender: KYOWA
  Company Number: CN-KYOWAKIRIN-2025KK022277

PATIENT

DRUGS (4)
  1. TOREMIFENE [Suspect]
     Active Substance: TOREMIFENE
     Indication: Breast cancer
     Dosage: FOR A LONG TIME (60 MG,1 IN 1 D)
     Route: 048
     Dates: start: 20251006, end: 20251102
  2. TOREMIFENE [Suspect]
     Active Substance: TOREMIFENE
     Dosage: (60 MG,1 D)
     Route: 048
     Dates: start: 202511
  3. RIBOCICLIB [Suspect]
     Active Substance: RIBOCICLIB
     Indication: Breast cancer
     Dosage: TAKEN CONTINUOUSLY FOR 21 DAYS AND STOPPED FOR 7 DAYS (600 MG,1 IN 1 D)
     Route: 048
     Dates: start: 20251006, end: 20251027
  4. RIBOCICLIB [Suspect]
     Active Substance: RIBOCICLIB
     Dosage: (600 MG,1 D)
     Route: 048
     Dates: start: 202511

REACTIONS (2)
  - White blood cell count decreased [Recovering/Resolving]
  - Neutropenia [Recovering/Resolving]

NARRATIVE: CASE EVENT DATE: 20251102
